FAERS Safety Report 24230932 (Version 1)
Quarter: 2024Q3

REPORT INFORMATION
  Report Type: Other
  Country: CA (occurrence: CA)
  Receive Date: 20240821
  Receipt Date: 20240821
  Transmission Date: 20241016
  Serious: Yes (Other)
  Sender: APOTEX
  Company Number: CA-APOTEX-2024AP009273

PATIENT
  Sex: Female

DRUGS (1)
  1. FINGOLIMOD [Suspect]
     Active Substance: FINGOLIMOD
     Indication: Product used for unknown indication
     Dosage: 0.5 MILLIGRAM
     Route: 048

REACTIONS (4)
  - Cervix disorder [Unknown]
  - Expanded disability status scale [Unknown]
  - Basal cell carcinoma [Unknown]
  - Hypertension [Unknown]
